FAERS Safety Report 8842101 (Version 1)
Quarter: 2012Q4

REPORT INFORMATION
  Report Type: Spontaneous
  Country: US (occurrence: None)
  Receive Date: 20121015
  Receipt Date: 20121015
  Transmission Date: 20130627
  Serious: No
  Sender: FDA-Public Use
  Company Number: None

PATIENT
  Age: 26 Year
  Sex: Female
  Weight: 56.7 kg

DRUGS (6)
  1. PAROXETINE [Suspect]
     Indication: DEPRESSION
     Dosage: 1 tablet, 1 daily, po
     Route: 048
     Dates: start: 20120919, end: 20121014
  2. VYVANSE [Concomitant]
  3. PROPRANOLOL [Concomitant]
  4. METHYLPHENIDATE [Concomitant]
  5. LOESTRIN [Concomitant]
  6. ZOLPIDEM [Concomitant]

REACTIONS (6)
  - Depression [None]
  - Anxiety [None]
  - Hyperhidrosis [None]
  - Insomnia [None]
  - Product substitution issue [None]
  - Product quality issue [None]
